FAERS Safety Report 4829954-6 (Version None)
Quarter: 2005Q4

REPORT INFORMATION
  Report Type: 
  Country: None (occurrence: None)
  Receive Date: 20051115
  Receipt Date: 20051103
  Transmission Date: 20060501
  Serious: Yes (Hospitalization)
  Sender: FDA-Public Use
  Company Number: DE-2004-033454

PATIENT
  Age: 48 Year
  Sex: Female

DRUGS (3)
  1. BETASERON [Suspect]
     Dosage: SUBCUTANEOUS
     Route: 058
     Dates: start: 20000101, end: 20041012
  2. BETASERON [Suspect]
     Dosage: SUBCUTANEOUS
     Route: 058
     Dates: start: 20041027
  3. VIOXX [Concomitant]

REACTIONS (17)
  - ALANINE AMINOTRANSFERASE INCREASED [None]
  - ASPARTATE AMINOTRANSFERASE INCREASED [None]
  - AUTOIMMUNE DISORDER [None]
  - BLOOD LACTATE DEHYDROGENASE INCREASED [None]
  - CHROMATURIA [None]
  - CONDUCTION DISORDER [None]
  - ENCEPHALITIS [None]
  - GENERAL PHYSICAL HEALTH DETERIORATION [None]
  - HAEMOGLOBIN DECREASED [None]
  - MULTIPLE SCLEROSIS RELAPSE [None]
  - MYOSITIS [None]
  - OEDEMA PERIPHERAL [None]
  - PAIN IN EXTREMITY [None]
  - PLATELET COUNT INCREASED [None]
  - PNEUMONIA CHLAMYDIAL [None]
  - RENAL IMPAIRMENT [None]
  - VISUAL DISTURBANCE [None]
